FAERS Safety Report 4897196-4 (Version None)
Quarter: 2006Q1

REPORT INFORMATION
  Report Type: 
  Country: None (occurrence: None)
  Receive Date: 20060127
  Receipt Date: 20060116
  Transmission Date: 20060701
  Serious: No
  Sender: FDA-Public Use
  Company Number: 2006-137621-NL

PATIENT
  Age: 57 Year
  Sex: Male

DRUGS (5)
  1. MIRTAZAPINE [Suspect]
     Indication: DEPRESSION
     Dosage: 30 MG/45 MG ORAL
     Route: 048
     Dates: end: 20050324
  2. MIRTAZAPINE [Suspect]
     Indication: DEPRESSION
     Dosage: 30 MG/45 MG ORAL
     Route: 048
     Dates: start: 20050324, end: 20050617
  3. CO-RENITEN [Concomitant]
  4. VALPROATE SODIUM [Concomitant]
  5. ESOMEPRAZOLE [Concomitant]

REACTIONS (6)
  - FATIGUE [None]
  - GENERAL PHYSICAL HEALTH DETERIORATION [None]
  - HEPATIC CIRRHOSIS [None]
  - SLEEP DISORDER [None]
  - TACHYCARDIA [None]
  - WEIGHT DECREASED [None]
